FAERS Safety Report 6658085-8 (Version None)
Quarter: 2010Q1

REPORT INFORMATION
  Report Type: 
  Country: None (occurrence: None)
  Receive Date: 20100330
  Receipt Date: 20100323
  Transmission Date: 20100710
  Serious: Yes (Other)
  Sender: FDA-Public Use
  Company Number: DZ-MERCK-1003USA03941

PATIENT
  Age: 42 Month
  Sex: Female
  Weight: 13 kg

DRUGS (1)
  1. SINGULAIR [Suspect]
     Indication: ASTHMA
     Route: 048

REACTIONS (4)
  - BRADYCARDIA [None]
  - HAEMOPTYSIS [None]
  - RESPIRATORY DISORDER [None]
  - RHINORRHOEA [None]
